FAERS Safety Report 5902269-0 (Version None)
Quarter: 2008Q3

REPORT INFORMATION
  Report Type: 
  Country: None (occurrence: None)
  Receive Date: 20080929
  Receipt Date: 20080609
  Transmission Date: 20090109
  Serious: No
  Sender: FDA-Public Use
  Company Number: US-BAUSCH-2008BL002547

PATIENT
  Age: 86 Year
  Sex: Male

DRUGS (5)
  1. DICLOFENAC SODIUM [Suspect]
     Indication: EYE INFLAMMATION
     Route: 047
     Dates: start: 20080608
  2. BETIMOL [Concomitant]
     Indication: GLAUCOMA
     Route: 047
  3. PRED FORTE [Concomitant]
     Indication: EYE INFLAMMATION
     Route: 047
  4. BRIMONIDINE [Concomitant]
     Indication: GLAUCOMA
     Route: 047
  5. XALATAN /SWE/ [Concomitant]
     Indication: GLAUCOMA
     Route: 047

REACTIONS (1)
  - EYE IRRITATION [None]
